FAERS Safety Report 25869859 (Version 1)
Quarter: 2025Q4

REPORT INFORMATION
  Report Type: Spontaneous
  Country: US (occurrence: None)
  Receive Date: 20251001
  Receipt Date: 20251001
  Transmission Date: 20260117
  Serious: Yes (Disabling)
  Sender: FDA-CTU
  Company Number: None

PATIENT
  Age: 57 Year
  Sex: Female
  Weight: 80.55 kg

DRUGS (4)
  1. RISPERIDONE [Suspect]
     Active Substance: RISPERIDONE
     Indication: Bipolar I disorder
     Dosage: OTHER QUANTITY : 1 TABLET(S);?FREQUENCY : AT BEDTIME;?
     Route: 048
     Dates: start: 20191001
  2. RISPERIDONE [Concomitant]
     Active Substance: RISPERIDONE
  3. Visteral 25 mg [Concomitant]
  4. LUNESTA [Concomitant]
     Active Substance: ESZOPICLONE

REACTIONS (8)
  - Sinus tachycardia [None]
  - Weight increased [None]
  - Hunger [None]
  - Thirst [None]
  - Dry mouth [None]
  - Rash macular [None]
  - Low density lipoprotein increased [None]
  - Sleep disorder [None]

NARRATIVE: CASE EVENT DATE: 20250728
